FAERS Safety Report 4689468-3 (Version None)
Quarter: 2005Q2

REPORT INFORMATION
  Report Type: 
  Country: None (occurrence: None)
  Receive Date: 20050311
  Receipt Date: 20050311
  Transmission Date: 20051028
  Serious: Yes (Other)
  Sender: FDA-Public Use
  Company Number: None

PATIENT
  Age: 4 Year
  Sex: Male

DRUGS (2)
  1. REMERON SOLTAB [Suspect]
     Indication: AFFECTIVE DISORDER
     Dosage: 15MG PO Q HS
     Route: 048
     Dates: start: 20040401, end: 20040901
  2. REMERON SOLTAB [Suspect]
     Indication: AFFECTIVE DISORDER
     Dosage: 15MG PO Q HS
     Route: 048
     Dates: start: 20041202

REACTIONS (2)
  - DYSPHAGIA [None]
  - INSOMNIA [None]
